FAERS Safety Report 8949927 (Version 1)
Quarter: 2012Q4

REPORT INFORMATION
  Report Type: 
  Country: US (occurrence: US)
  Receive Date: 20121205
  Receipt Date: 20121205
  Transmission Date: 20130627
  Serious: No
  Sender: FDA-Public Use
  Company Number: US-009507513-1212USA000899

PATIENT
  Sex: Female
  Weight: 66.21 kg

DRUGS (6)
  1. PEGINTRON [Suspect]
     Dosage: 0.4 ml, qw
     Route: 058
  2. RIBAPAK [Suspect]
     Dosage: Pak 1000/day
  3. TELAPREVIR [Suspect]
  4. LISINOPRIL [Concomitant]
  5. NATURES WAY ALIVE WOMENS 50 PLUS [Concomitant]
  6. INTEGRA F [Concomitant]

REACTIONS (4)
  - Anaemia [Unknown]
  - Fatigue [Unknown]
  - Dizziness [Unknown]
  - Constipation [Recovered/Resolved]
